FAERS Safety Report 8579949-4 (Version None)
Quarter: 2012Q3

REPORT INFORMATION
  Report Type: 
  Country: None (occurrence: None)
  Receive Date: 20120808
  Receipt Date: 20120726
  Transmission Date: 20120928
  Serious: Yes (Death)
  Sender: FDA-Public Use
  Company Number: HU-ELI_LILLY_AND_COMPANY-HU201202007261

PATIENT
  Age: 50 Year
  Sex: Female

DRUGS (3)
  1. OLANZAPINE [Suspect]
     Indication: SCHIZOPHRENIA
     Dosage: 300 MG, EVERY TWO WEEKS
     Route: 030
     Dates: start: 20110720, end: 20120118
  2. FRONTIN [Concomitant]
     Indication: ANXIETY
     Dosage: 1.5 MG, UNKNOWN
  3. CARVEDILOL [Concomitant]
     Dosage: 6.25 MG, QD

REACTIONS (1)
  - PULMONARY EMBOLISM [None]
